FAERS Safety Report 4980100-8 (Version None)
Quarter: 2006Q2

REPORT INFORMATION
  Report Type: 
  Country: None (occurrence: None)
  Receive Date: 20060421
  Receipt Date: 20050825
  Transmission Date: 20061013
  Serious: Yes (Death, Hospitalization, Disabling)
  Sender: FDA-Public Use
  Company Number: US-MERCK-0508USA04299

PATIENT
  Age: 49 Year
  Sex: Male
  Weight: 114 kg

DRUGS (6)
  1. VIOXX [Suspect]
     Indication: PAIN
     Route: 048
     Dates: start: 20010201, end: 20010601
  2. VIOXX [Suspect]
     Route: 048
     Dates: start: 20010201, end: 20010601
  3. VIOXX [Suspect]
     Route: 048
     Dates: start: 20001205, end: 20010201
  4. VIOXX [Suspect]
     Indication: INFLAMMATION
     Route: 048
     Dates: start: 20010201, end: 20010601
  5. VIOXX [Suspect]
     Route: 048
     Dates: start: 20010201, end: 20010601
  6. VIOXX [Suspect]
     Route: 048
     Dates: start: 20001205, end: 20010201

REACTIONS (4)
  - CARDIAC DISORDER [None]
  - CARDIAC FAILURE CONGESTIVE [None]
  - DEATH [None]
  - MYOCARDIAL INFARCTION [None]
